FAERS Safety Report 4696081-0 (Version None)
Quarter: 2005Q2

REPORT INFORMATION
  Report Type: 
  Country: None (occurrence: None)
  Receive Date: 20050621
  Receipt Date: 20050610
  Transmission Date: 20051028
  Serious: Yes (Other)
  Sender: FDA-Public Use
  Company Number: US-ROCHE-407314

PATIENT
  Age: 45 Year
  Sex: Female
  Weight: 50.3 kg

DRUGS (4)
  1. PEGASYS [Suspect]
     Indication: HEPATITIS C
     Route: 058
     Dates: start: 20030513, end: 20040901
  2. COPEGUS [Suspect]
     Indication: HEPATITIS C
     Route: 048
     Dates: start: 20030513, end: 20040204
  3. COPEGUS [Suspect]
     Route: 048
     Dates: start: 20040204, end: 20040310
  4. EFFEXOR [Concomitant]
     Indication: PROPHYLAXIS

REACTIONS (20)
  - ARTHRALGIA [None]
  - ARTHRITIS [None]
  - BONE PAIN [None]
  - CHOLELITHIASIS [None]
  - DRUG INEFFECTIVE [None]
  - ERYTHEMA [None]
  - FATIGUE [None]
  - FIBROMYALGIA [None]
  - HEADACHE [None]
  - HYPOAESTHESIA [None]
  - LEUKOPENIA [None]
  - NAUSEA [None]
  - NERVOUSNESS [None]
  - ONYCHOMADESIS [None]
  - PALLOR [None]
  - PERSONALITY CHANGE [None]
  - RAYNAUD'S PHENOMENON [None]
  - SKIN DISCOLOURATION [None]
  - THERAPY NON-RESPONDER [None]
  - VOMITING [None]
